FAERS Safety Report 8496316 (Version 3)
Quarter: 2012Q4

REPORT INFORMATION
  Report Type: 
  Country: US (occurrence: US)
  Receive Date: 20120405
  Receipt Date: 20121219
  Transmission Date: 20130627
  Serious: Yes (Hospitalization, Other)
  Sender: FDA-Public Use
  Company Number: US-ACTELION-A-NJ2012-63413

PATIENT
  Age: 75 Year
  Sex: Female

DRUGS (2)
  1. TRACLEER [Suspect]
     Indication: PULMONARY ARTERIAL HYPERTENSION
     Dosage: UNK
     Route: 048
     Dates: start: 20100120, end: 2012
  2. TRACLEER [Suspect]
     Dosage: UNK
     Route: 048
     Dates: start: 2012

REACTIONS (6)
  - Myocardial infarction [Unknown]
  - Emphysema [Unknown]
  - Dyspnoea [Unknown]
  - Concomitant disease aggravated [Unknown]
  - Feeling abnormal [Unknown]
  - Chronic obstructive pulmonary disease [Unknown]
